FAERS Safety Report 4293032-8 (Version None)
Quarter: 2004Q1

REPORT INFORMATION
  Report Type: 
  Country: None (occurrence: None)
  Receive Date: 20040210
  Receipt Date: 20040128
  Transmission Date: 20041129
  Serious: Yes (Hospitalization)
  Sender: FDA-Public Use
  Company Number: JP-JNJFOC-20031203077

PATIENT
  Age: 61 Year
  Sex: Male
  Weight: 43.7 kg

DRUGS (15)
  1. REMICADE [Suspect]
     Indication: RHEUMATOID ARTHRITIS
     Dosage: 3 MG/KG, 1 IN 1 DAY, INTRAVENOUS DRIP
     Route: 042
     Dates: start: 20031022, end: 20031022
  2. REMICADE [Suspect]
     Indication: RHEUMATOID ARTHRITIS
     Dosage: 3 MG/KG, 1 IN 1 DAY, INTRAVENOUS DRIP
     Route: 042
     Dates: start: 20031119, end: 20031119
  3. REMICADE [Suspect]
     Indication: RHEUMATOID ARTHRITIS
     Dosage: 3 MG/KG, 1 IN 1 DAY, INTRAVENOUS DRIP
     Route: 042
     Dates: start: 20031008
  4. RHEUMATREX [Suspect]
     Dosage: 6 MG, IN 1 WEEK, ORAL; SEE IMAGE
     Route: 048
     Dates: start: 20011010, end: 20011113
  5. RHEUMATREX [Suspect]
     Dosage: 6 MG, IN 1 WEEK, ORAL; SEE IMAGE
     Route: 048
     Dates: start: 20011114, end: 20020218
  6. RHEUMATREX [Suspect]
     Dosage: 6 MG, IN 1 WEEK, ORAL; SEE IMAGE
     Route: 048
     Dates: start: 20020218, end: 20020901
  7. RHEUMATREX [Suspect]
     Dosage: 6 MG, IN 1 WEEK, ORAL; SEE IMAGE
     Route: 048
     Dates: start: 20020902, end: 20021208
  8. RHEUMATREX [Suspect]
     Dosage: 6 MG, IN 1 WEEK, ORAL; SEE IMAGE
     Route: 048
     Dates: start: 20021209, end: 20030817
  9. RHEUMATREX [Suspect]
     Dosage: 6 MG, IN 1 WEEK, ORAL; SEE IMAGE
     Route: 048
     Dates: start: 20030818
  10. METHOTREXATE [Suspect]
     Indication: RHEUMATOID ARTHRITIS
     Dosage: 7.5 MG, IN 1 WEEK, ORAL
     Route: 048
  11. PREDNISOLONE (TABLETS) PREDNISOLONE [Concomitant]
  12. FOLIAMIN (TABLETS) FOLIC ACID [Concomitant]
  13. MUCOSTA (TABLETS) REBAMIPIDE [Concomitant]
  14. VITAMEDIN (VITAMEDIN CAPSULE) CAPSULES [Concomitant]
  15. LANSOPRAZOLE [Concomitant]

REACTIONS (4)
  - HYPERTENSION [None]
  - IMMUNODEFICIENCY [None]
  - NAUSEA [None]
  - PNEUMOCYSTIS CARINII PNEUMONIA [None]
